FAERS Safety Report 14227096 (Version 4)
Quarter: 2018Q1

REPORT INFORMATION
  Report Type: Spontaneous
  Country: NL (occurrence: NL)
  Receive Date: 20171127
  Receipt Date: 20180323
  Transmission Date: 20180508
  Serious: Yes (Hospitalization, Other)
  Sender: FDA-Public Use
  Company Number: NL-PFIZER INC-2015275540

PATIENT
  Age: 51 Year
  Sex: Male

DRUGS (29)
  1. SOMAVERT [Suspect]
     Active Substance: PEGVISOMANT
     Dosage: UNK
     Route: 058
     Dates: start: 20080627
  2. SOMAVERT [Suspect]
     Active Substance: PEGVISOMANT
     Dosage: 60 MG, 1X/DAY
     Route: 058
     Dates: start: 20130218
  3. SOMAVERT [Suspect]
     Active Substance: PEGVISOMANT
     Dosage: 40 MG, 1X/DAY
     Route: 058
     Dates: start: 20141106
  4. EZETIMIBE. [Concomitant]
     Active Substance: EZETIMIBE
     Dosage: 10 MG, 1X/DAY
     Route: 048
  5. VILDAGLIPTINE [Concomitant]
     Dosage: 50 MG, 1X/DAY
     Route: 048
  6. SOMAVERT [Suspect]
     Active Substance: PEGVISOMANT
     Indication: ACROMEGALY
     Dosage: UNK
     Route: 058
     Dates: start: 20080627
  7. CALCIUMCARBONAAT [Concomitant]
     Dosage: 1000 MG, 1X/DAY
     Route: 048
  8. SOMAVERT [Suspect]
     Active Substance: PEGVISOMANT
     Dosage: 140 MG, 2X/WEEK
     Route: 058
     Dates: start: 20121030
  9. SOMAVERT [Suspect]
     Active Substance: PEGVISOMANT
     Dosage: 80 MG, 1X/WEEK
     Route: 058
     Dates: start: 20160127
  10. SOMAVERT [Suspect]
     Active Substance: PEGVISOMANT
     Dosage: 120 MG, WEEKLY (40MG ON WEDNESDAY, 80MG ON SATURDAY)
     Route: 058
     Dates: start: 20161206
  11. HYDROCORTISON [Concomitant]
     Active Substance: HYDROCORTISONE
     Dosage: 5 MG, UNK
     Route: 048
  12. OXYCODON [Concomitant]
     Active Substance: OXYCODONE
     Dosage: 10 MG, UNK
     Route: 048
  13. PASIREOTIDE. [Concomitant]
     Active Substance: PASIREOTIDE
     Dosage: UNK
  14. SOMAVERT [Suspect]
     Active Substance: PEGVISOMANT
     Dosage: UNK
     Route: 058
     Dates: start: 20111205
  15. CLOBETASOL [Concomitant]
     Active Substance: CLOBETASOL
     Dosage: UNK
  16. DICLOFENAC NATRIUM MICRO LABS [Concomitant]
     Dosage: 50 MG, 3X/DAY
     Route: 048
  17. MACROGOL [Concomitant]
     Active Substance: POLYETHYLENE GLYCOLS
     Dosage: UNK
     Route: 048
  18. PANTOPRAZOL [Concomitant]
     Active Substance: PANTOPRAZOLE SODIUM
     Dosage: 40 MG, 2X/DAY
     Route: 048
  19. SOMAVERT [Suspect]
     Active Substance: PEGVISOMANT
     Dosage: 120 MG, WEEKLY
     Route: 058
     Dates: start: 20121030
  20. AMLODIPINE [Concomitant]
     Active Substance: AMLODIPINE BESYLATE
     Dosage: 10 MG, 1X/DAY
  21. CARVEDILOL. [Concomitant]
     Active Substance: CARVEDILOL
     Dosage: 6.25 MG, 2X/DAY
     Route: 048
  22. SOMAVERT [Suspect]
     Active Substance: PEGVISOMANT
     Dosage: 60 MG, 2X/WEEK
     Dates: start: 20180319
  23. LOSARTAN. [Concomitant]
     Active Substance: LOSARTAN
     Dosage: 100 MG, 1X/DAY
     Route: 048
  24. OMEPRAZOL [Concomitant]
     Active Substance: OMEPRAZOLE
     Dosage: 40 MG, 2X/DAY
     Route: 048
  25. TESTOSTERON [Concomitant]
     Active Substance: TESTOSTERONE
     Dosage: 250 MG/ML, UNK
  26. SOMAVERT [Suspect]
     Active Substance: PEGVISOMANT
     Dosage: 45 MG, 1X/DAY
     Route: 058
     Dates: start: 20120718
  27. ACETYLSALICYLZUUR [Concomitant]
     Active Substance: ASPIRIN
     Dosage: 80 MG, 1X/DAY
     Route: 048
  28. LEVOTHYROXINE. [Concomitant]
     Active Substance: LEVOTHYROXINE
     Dosage: 137 UG, 1X/DAY
     Route: 048
  29. METFORMINE [Concomitant]
     Active Substance: METFORMIN HYDROCHLORIDE
     Dosage: 850 MG, 3X/DAY
     Route: 048

REACTIONS (4)
  - Product use issue [Unknown]
  - Cholecystitis infective [Not Recovered/Not Resolved]
  - Cholelithiasis [Not Recovered/Not Resolved]
  - Bacteraemia [Not Recovered/Not Resolved]

NARRATIVE: CASE EVENT DATE: 20120718
